FAERS Safety Report 19254376 (Version 1)
Quarter: 2021Q2

REPORT INFORMATION
  Report Type: Spontaneous
  Country: FR (occurrence: FR)
  Receive Date: 20210513
  Receipt Date: 20210513
  Transmission Date: 20210717
  Serious: Yes (Other)
  Sender: FDA-Public Use
  Company Number: FR-AMGEN-FRASP2021040074

PATIENT
  Age: 69 Year
  Sex: Female

DRUGS (11)
  1. CORTANCYL [Concomitant]
     Active Substance: PREDNISONE
     Dosage: 13 MILLIGRAM
     Dates: start: 202010
  2. CORTANCYL [Concomitant]
     Active Substance: PREDNISONE
     Dosage: 8 UNK
     Dates: start: 2021
  3. CORTANCYL [Concomitant]
     Active Substance: PREDNISONE
     Dosage: 12 MILLIGRAM
     Dates: start: 202011
  4. CORTANCYL [Concomitant]
     Active Substance: PREDNISONE
     Dosage: 10 MILLIGRAM
     Dates: start: 202101
  5. ASPEGIC [Concomitant]
     Dosage: 100 MILLIGRAM, 1 AT NOON
  6. CORTANCYL [Concomitant]
     Active Substance: PREDNISONE
     Dosage: 14 MILLIGRAM
     Dates: start: 202009
  7. IRBESARTAN. [Concomitant]
     Active Substance: IRBESARTAN
     Dosage: 300 MILLIGRAM, 1 IN THE MORNING
  8. PROLIA [Suspect]
     Active Substance: DENOSUMAB
     Indication: PRODUCT USED FOR UNKNOWN INDICATION
     Dosage: UNK UNK, Q6MO
     Route: 058
  9. CORTANCYL [Concomitant]
     Active Substance: PREDNISONE
     Dosage: 15 MILLIGRAM
     Dates: start: 202008
  10. CORTANCYL [Concomitant]
     Active Substance: PREDNISONE
     Dosage: 11 MILLIGRAM
     Dates: start: 202012
  11. CORTANCYL [Concomitant]
     Active Substance: PREDNISONE
     Dosage: 9 MILLIGRAM
     Dates: start: 202102

REACTIONS (6)
  - Giant cell arteritis [Recovered/Resolved]
  - Tooth abscess [Unknown]
  - Phlebitis [Unknown]
  - Osteolysis [Recovering/Resolving]
  - Osteitis [Recovering/Resolving]
  - Pain in extremity [Unknown]

NARRATIVE: CASE EVENT DATE: 202001
